FAERS Safety Report 18554995 (Version 2)
Quarter: 2022Q3

REPORT INFORMATION
  Report Type: Spontaneous
  Country: US (occurrence: US)
  Receive Date: 20201127
  Receipt Date: 20220914
  Transmission Date: 20221027
  Serious: Yes (Death, Other)
  Sender: FDA-Public Use
  Company Number: US-PURDUE-USA-2020-0173057

PATIENT
  Age: 64 Year
  Sex: Female

DRUGS (19)
  1. MS CONTIN [Suspect]
     Active Substance: MORPHINE SULFATE
     Indication: Post laminectomy syndrome
     Dosage: 30 MG, Q8H
     Route: 048
     Dates: start: 20160504
  2. MS CONTIN [Suspect]
     Active Substance: MORPHINE SULFATE
     Indication: Radiculopathy
     Dosage: 60 MG, Q12H
     Route: 048
     Dates: start: 20160111
  3. MS CONTIN [Suspect]
     Active Substance: MORPHINE SULFATE
     Dosage: 100 MG, Q8H
     Route: 048
     Dates: start: 20150706
  4. OXYCODONE HYDROCHLORIDE [Suspect]
     Active Substance: OXYCODONE HYDROCHLORIDE
     Indication: Post laminectomy syndrome
     Dosage: 30 MG, TID PRN
     Route: 048
     Dates: start: 20170424
  5. OXYCODONE HYDROCHLORIDE [Suspect]
     Active Substance: OXYCODONE HYDROCHLORIDE
     Indication: Radiculopathy
     Dosage: 20 MG, QID PRN
     Route: 048
     Dates: start: 20160830
  6. OXYCODONE HYDROCHLORIDE [Suspect]
     Active Substance: OXYCODONE HYDROCHLORIDE
     Dosage: 15 MG, QID PRN
     Route: 048
     Dates: start: 20160504
  7. OXYCODONE HYDROCHLORIDE [Suspect]
     Active Substance: OXYCODONE HYDROCHLORIDE
     Dosage: 15 MG, Q6H
     Route: 048
     Dates: start: 20160111
  8. MORPHINE SULFATE [Suspect]
     Active Substance: MORPHINE SULFATE
     Indication: Post laminectomy syndrome
     Dosage: 30 MG, Q6H PRN
     Route: 048
     Dates: start: 20151111
  9. MORPHINE SULFATE [Suspect]
     Active Substance: MORPHINE SULFATE
     Indication: Radiculopathy
  10. FENTANYL [Suspect]
     Active Substance: FENTANYL
     Indication: Post laminectomy syndrome
     Dosage: 100 MCG/HR, Q48H
     Route: 062
     Dates: start: 20151111
  11. FENTANYL [Suspect]
     Active Substance: FENTANYL
     Indication: Radiculopathy
     Dosage: 75 MCG/HR, Q72H
     Route: 062
     Dates: start: 20150916
  12. KEPPRA [Concomitant]
     Active Substance: LEVETIRACETAM
     Indication: Seizure
     Dosage: 1000 MG, Q12H
     Route: 048
     Dates: start: 20150916
  13. NEURONTIN [Concomitant]
     Active Substance: GABAPENTIN
     Indication: Seizure
     Dosage: 800 MG, Q8H
     Route: 048
     Dates: start: 20150916
  14. NEURONTIN [Concomitant]
     Active Substance: GABAPENTIN
     Indication: Paraesthesia
  15. ROBAXIN [Concomitant]
     Active Substance: METHOCARBAMOL
     Indication: Myalgia
     Dosage: 500 MG, Q8H
     Route: 048
     Dates: start: 20150916
  16. KLONOPIN [Concomitant]
     Active Substance: CLONAZEPAM
     Indication: Anxiety disorder
     Dosage: 1 MG, BID PRN
     Route: 048
     Dates: start: 20150916
  17. ZANAFLEX [Concomitant]
     Active Substance: TIZANIDINE HYDROCHLORIDE
     Indication: Myalgia
     Dosage: 4 MG, NOCTE PRN
     Route: 048
     Dates: start: 20160504
  18. DIAZEPAM [Concomitant]
     Active Substance: DIAZEPAM
     Indication: Product used for unknown indication
     Dosage: UNKNOWN
     Route: 065
  19. SYNTHROID [Concomitant]
     Active Substance: LEVOTHYROXINE SODIUM
     Indication: Product used for unknown indication
     Dosage: UNKNOWN
     Route: 065

REACTIONS (3)
  - Drug dependence [Fatal]
  - Myocardial infarction [Fatal]
  - Overdose [Unknown]

NARRATIVE: CASE EVENT DATE: 20171001
